FAERS Safety Report 15350509 (Version 5)
Quarter: 2018Q4

REPORT INFORMATION
  Report Type: Report from Study
  Country: IT (occurrence: IT)
  Receive Date: 20180905
  Receipt Date: 20181024
  Transmission Date: 20190204
  Serious: Yes (Hospitalization)
  Sender: FDA-Public Use
  Company Number: IT-TEVA-2018-IT-951486

PATIENT
  Age: 67 Year
  Sex: Female

DRUGS (10)
  1. HALCION [Suspect]
     Active Substance: TRIAZOLAM
     Indication: DRUG ABUSE
     Route: 048
     Dates: start: 20180708, end: 20180708
  2. BROMAZEPAM [Suspect]
     Active Substance: BROMAZEPAM
     Indication: DRUG ABUSE
     Route: 048
     Dates: start: 20180708, end: 20180708
  3. LAROXYL 25 MG COMPRESSE RIVESTITE [Suspect]
     Active Substance: AMITRIPTYLINE HYDROCHLORIDE
     Indication: DRUG ABUSE
     Route: 048
     Dates: start: 20180708
  4. TRIAZOLAM. [Suspect]
     Active Substance: TRIAZOLAM
     Indication: DRUG ABUSE
     Route: 065
     Dates: start: 20180708, end: 20180708
  5. VENLAFAXINA TEVA ITALIA 75 MG CAPSULE RIGIDE A RILASCIO PROLUNGATO [Suspect]
     Active Substance: VENLAFAXINE HYDROCHLORIDE
     Indication: DRUG ABUSE
     Route: 048
     Dates: start: 20180708
  6. PANTOPRAZOLE [Suspect]
     Active Substance: PANTOPRAZOLE
     Indication: DRUG ABUSE
     Route: 048
     Dates: start: 20180708
  7. RAMIPRIL. [Suspect]
     Active Substance: RAMIPRIL
     Indication: DRUG ABUSE
     Route: 048
     Dates: start: 20180708
  8. AMITRIPTYLINE HYDROCHLORIDE. [Suspect]
     Active Substance: AMITRIPTYLINE HYDROCHLORIDE
     Indication: DRUG ABUSE
     Route: 048
     Dates: start: 20180708
  9. COMPENDIUM 2,5 MG/ML GOCCE ORALI, SOLUZIONE [Suspect]
     Active Substance: BROMAZEPAM
     Indication: DRUG ABUSE
     Route: 048
     Dates: start: 20180708, end: 20180708
  10. ACETYLSALICYLIC ACID [Suspect]
     Active Substance: ASPIRIN
     Indication: DRUG ABUSE
     Route: 048
     Dates: start: 20180708

REACTIONS (3)
  - Drug abuse [Recovering/Resolving]
  - Sopor [Recovering/Resolving]
  - Confusional state [Recovering/Resolving]

NARRATIVE: CASE EVENT DATE: 20180708
